FAERS Safety Report 8347177-3 (Version None)
Quarter: 2012Q2

REPORT INFORMATION
  Report Type: 
  Country: None (occurrence: None)
  Receive Date: 20120509
  Receipt Date: 20120501
  Transmission Date: 20120825
  Serious: Yes (Other)
  Sender: FDA-Public Use
  Company Number: US-ASTRAZENECA-2011SE51553

PATIENT
  Age: 82 Year
  Sex: Female

DRUGS (2)
  1. PREDNISONE [Concomitant]
  2. NEXIUM [Suspect]
     Route: 048

REACTIONS (5)
  - COUGH [None]
  - THYROID DISORDER [None]
  - OESOPHAGEAL DISORDER [None]
  - MALAISE [None]
  - NEOPLASM MALIGNANT [None]
